FAERS Safety Report 18031294 (Version 1)
Quarter: 2020Q3

REPORT INFORMATION
  Report Type: Spontaneous
  Country: US (occurrence: US)
  Receive Date: 20200715
  Receipt Date: 20200715
  Transmission Date: 20201103
  Serious: Yes (Death)
  Sender: FDA-Public Use
  Company Number: None

PATIENT
  Age: 70 Year
  Sex: Male

DRUGS (7)
  1. PREVYMIS [Suspect]
     Active Substance: LETERMOVIR
     Indication: ORGAN TRANSPLANT
     Route: 048
     Dates: start: 20190425
  2. MYCOPHENOLAT [Concomitant]
     Active Substance: MYCOPHENOLATE MOFETIL
  3. TACROLIMUS. [Concomitant]
     Active Substance: TACROLIMUS
  4. NOVOLOG [Concomitant]
     Active Substance: INSULIN ASPART
  5. ITRACONAZOLE. [Concomitant]
     Active Substance: ITRACONAZOLE
  6. LANTUS SOLOS [Concomitant]
  7. MONTELUKAST [Concomitant]
     Active Substance: MONTELUKAST SODIUM

REACTIONS (2)
  - COVID-19 [None]
  - Therapy interrupted [None]

NARRATIVE: CASE EVENT DATE: 202007
